FAERS Safety Report 4425368-1 (Version None)
Quarter: 2004Q3

REPORT INFORMATION
  Report Type: 
  Country: None (occurrence: None)
  Receive Date: 20040813
  Receipt Date: 20040413
  Transmission Date: 20050211
  Serious: Yes (Death)
  Sender: FDA-Public Use
  Company Number: US-GLAXOSMITHKLINE-A0508203A

PATIENT
  Age: 81 Year
  Sex: Male

DRUGS (3)
  1. AVANDIA [Suspect]
     Route: 048
     Dates: start: 20000612, end: 20010701
  2. RELAFEN [Concomitant]
  3. CELEBREX [Concomitant]

REACTIONS (1)
  - CARDIAC ARREST [None]
